FAERS Safety Report 5076322-0 (Version None)
Quarter: 2006Q3

REPORT INFORMATION
  Report Type: 
  Country: None (occurrence: None)
  Receive Date: 20060807
  Receipt Date: 20060726
  Transmission Date: 20061208
  Serious: No
  Sender: FDA-Public Use
  Company Number: IT200607004767

PATIENT
  Sex: Female

DRUGS (3)
  1. DULOXETINE HYDROCHLORIDE(DULOXETINE HYDROCHLORIDE) CAPSULE [Suspect]
     Indication: DEPRESSION
     Dosage: 20 MG, DAILY (1/D), ORAL
     Route: 048
     Dates: start: 20060101
  2. ESCITALOPRAM (ESCITALOPRAM) [Concomitant]
  3. REMERON [Concomitant]

REACTIONS (5)
  - DRUG INEFFECTIVE [None]
  - GASTRITIS [None]
  - HYPERCHOLESTEROLAEMIA [None]
  - HYPERTRIGLYCERIDAEMIA [None]
  - TRANSAMINASES INCREASED [None]
